FAERS Safety Report 8247115-8 (Version None)
Quarter: 2012Q1

REPORT INFORMATION
  Report Type: 
  Country: None (occurrence: None)
  Receive Date: 20120330
  Receipt Date: 20120322
  Transmission Date: 20120608
  Serious: Yes (Hospitalization)
  Sender: FDA-Public Use
  Company Number: JP-JNJFOC-20120213653

PATIENT
  Sex: Male

DRUGS (1)
  1. RISPERDAL CONSTA [Suspect]
     Indication: SCHIZOPHRENIA
     Dosage: ADVERSE REACTION ON THE 4TH WEEK AFTER THE DRUG ADMINISTRATION
     Route: 030

REACTIONS (1)
  - PSYCHIATRIC SYMPTOM [None]
